FAERS Safety Report 4928846-1 (Version None)
Quarter: 2006Q1

REPORT INFORMATION
  Report Type: 
  Country: None (occurrence: None)
  Receive Date: 20060301
  Receipt Date: 20060103
  Transmission Date: 20060701
  Serious: Yes (Other)
  Sender: FDA-Public Use
  Company Number: PHNU2006DE00445

PATIENT
  Age: 63 Year
  Sex: Female
  Weight: 64 kg

DRUGS (3)
  1. ZOMETA [Suspect]
     Indication: MULTIPLE MYELOMA
     Dosage: 4 MG, QMO
     Route: 042
     Dates: start: 20050502, end: 20051129
  2. VELCADE [Concomitant]
     Indication: PLASMACYTOMA
     Dosage: 2 MG ON DAY 1, 4, 8, 11 EVERY 3 WEEKS
     Route: 042
     Dates: start: 20050607, end: 20051014
  3. AREDIA [Suspect]
     Indication: MULTIPLE MYELOMA
     Dosage: 90MG EVERY 4 WEEKS
     Dates: start: 20040920, end: 20050404

REACTIONS (4)
  - DRY SOCKET [None]
  - OSTEONECROSIS [None]
  - PLASTIC SURGERY [None]
  - TOOTH EXTRACTION [None]
